FAERS Safety Report 7753016-1 (Version None)
Quarter: 2011Q3

REPORT INFORMATION
  Report Type: 
  Country: None (occurrence: None)
  Receive Date: 20110915
  Receipt Date: 20110913
  Transmission Date: 20111222
  Serious: Yes (Death, Hospitalization)
  Sender: FDA-Public Use
  Company Number: US-PFIZER INC-2011216665

PATIENT
  Sex: Male
  Weight: 65.76 kg

DRUGS (3)
  1. TIKOSYN [Suspect]
     Dosage: 500 MG, UNK
     Route: 048
  2. LASIX [Concomitant]
     Indication: FLUID RETENTION
     Dosage: 40 MG, DAILY
  3. TIKOSYN [Suspect]
     Indication: CARDIAC DISORDER
     Dosage: 250 MG, 2X/DAY
     Route: 048
     Dates: start: 20090801

REACTIONS (3)
  - DEATH [None]
  - CONDITION AGGRAVATED [None]
  - CARDIAC DISORDER [None]
